FAERS Safety Report 8886649 (Version 2)
Quarter: 2013Q1

REPORT INFORMATION
  Report Type: Spontaneous
  Country: JP (occurrence: JP)
  Receive Date: 20121105
  Receipt Date: 20130311
  Transmission Date: 20140127
  Serious: Yes (Other)
  Sender: FDA-Public Use
  Company Number: PHHY2012JP099600

PATIENT
  Sex: Female

DRUGS (1)
  1. IRINOTECAN [Suspect]
     Route: 042

REACTIONS (1)
  - Interstitial lung disease [Unknown]
